FAERS Safety Report 7471509-1 (Version None)
Quarter: 2011Q2

REPORT INFORMATION
  Report Type: 
  Country: None (occurrence: None)
  Receive Date: 20110511
  Receipt Date: 20110503
  Transmission Date: 20111010
  Serious: No
  Sender: FDA-Public Use
  Company Number: US-BIOGENIDEC-2011BI016733

PATIENT
  Sex: Female

DRUGS (1)
  1. AVONEX [Suspect]
     Indication: MULTIPLE SCLEROSIS
     Route: 030
     Dates: start: 19981209, end: 20101119

REACTIONS (5)
  - PAIN IN EXTREMITY [None]
  - PAIN [None]
  - FEELING COLD [None]
  - SUICIDAL IDEATION [None]
  - INFLUENZA LIKE ILLNESS [None]
